FAERS Safety Report 7719921-7 (Version None)
Quarter: 2011Q3

REPORT INFORMATION
  Report Type: 
  Country: None (occurrence: None)
  Receive Date: 20110831
  Receipt Date: 20110822
  Transmission Date: 20111222
  Serious: No
  Sender: FDA-Public Use
  Company Number: US-BIOGENIDEC-2011BI032480

PATIENT
  Age: 46 Year
  Sex: Female

DRUGS (1)
  1. TYSABRI [Suspect]
     Indication: MULTIPLE SCLEROSIS
     Route: 042
     Dates: start: 20090609

REACTIONS (6)
  - MUSCULAR WEAKNESS [None]
  - GAIT DISTURBANCE [None]
  - MIGRAINE [None]
  - HYPOACUSIS [None]
  - HEADACHE [None]
  - PAIN [None]
